FAERS Safety Report 6887118-9 (Version None)
Quarter: 2010Q3

REPORT INFORMATION
  Report Type: 
  Country: None (occurrence: None)
  Receive Date: 20100730
  Receipt Date: 20100721
  Transmission Date: 20110219
  Serious: Yes (Other)
  Sender: FDA-Public Use
  Company Number: ES-JNJFOC-20100707226

PATIENT
  Age: 26 Year
  Sex: Male

DRUGS (6)
  1. CONCERTA [Suspect]
     Indication: OBSESSIVE-COMPULSIVE DISORDER
     Route: 048
  2. CONCERTA [Suspect]
     Route: 048
  3. PARACETAMOL [Interacting]
     Indication: MALAISE
     Route: 065
  4. PARACETAMOL [Interacting]
     Indication: FATIGUE
     Route: 065
  5. SERTRALINE HYDROCHLORIDE [Concomitant]
     Indication: PRODUCT USED FOR UNKNOWN INDICATION
  6. CLARITHROMYCIN [Concomitant]

REACTIONS (3)
  - CONVULSION [None]
  - DRUG INTERACTION [None]
  - OFF LABEL USE [None]
